FAERS Safety Report 7446080-0 (Version None)
Quarter: 2011Q2

REPORT INFORMATION
  Report Type: 
  Country: None (occurrence: None)
  Receive Date: 20110429
  Receipt Date: 20110426
  Transmission Date: 20111010
  Serious: Yes (Hospitalization)
  Sender: FDA-Public Use
  Company Number: BR-ABBOTT-11P-020-0721997-00

PATIENT
  Sex: Female
  Weight: 45 kg

DRUGS (4)
  1. HUMIRA [Suspect]
     Indication: RHEUMATOID ARTHRITIS
     Route: 058
     Dates: start: 20100101
  2. UNKNOWN DRUG [Concomitant]
     Indication: DIABETES MELLITUS
     Route: 048
  3. LOSARTAN POTASSIUM [Concomitant]
     Indication: HYPERTENSION
     Route: 048
  4. BECLAMIDE [Concomitant]
     Indication: DIABETES MELLITUS
     Dosage: 0.5 EVERY 24 HOURS
     Route: 048

REACTIONS (6)
  - APPLICATION SITE PAIN [None]
  - DRUG INEFFECTIVE [None]
  - ASTHENIA [None]
  - WEIGHT INCREASED [None]
  - WEIGHT DECREASED [None]
  - ANAEMIA [None]
